FAERS Safety Report 6275543-9 (Version None)
Quarter: 2009Q3

REPORT INFORMATION
  Report Type: 
  Country: None (occurrence: None)
  Receive Date: 20090721
  Receipt Date: 20090720
  Transmission Date: 20100115
  Serious: Yes (Death, Other)
  Sender: FDA-Public Use
  Company Number: US-ROXANE LABORATORIES, INC.-2009-RO-00666RO

PATIENT
  Age: 28 Year
  Sex: Male
  Weight: 82 kg

DRUGS (9)
  1. METHADONE HCL [Suspect]
  2. ALPRAZOLAM [Suspect]
  3. OXYCONTIN [Suspect]
  4. VALIUM [Suspect]
  5. NORDIAZEPAM [Suspect]
  6. OXAZEPAM [Suspect]
  7. TEMAZEPAM [Suspect]
  8. NICOTINE [Concomitant]
  9. CAFFEINE [Concomitant]

REACTIONS (6)
  - CARDIOMEGALY [None]
  - DRUG TOXICITY [None]
  - MULTIPLE DRUG OVERDOSE ACCIDENTAL [None]
  - PNEUMOCONIOSIS [None]
  - PULMONARY CONGESTION [None]
  - PULMONARY OEDEMA [None]
